FAERS Safety Report 16255395 (Version 1)
Quarter: 2019Q2

REPORT INFORMATION
  Report Type: Report from Study
  Country: GB (occurrence: GB)
  Receive Date: 20190430
  Receipt Date: 20190430
  Transmission Date: 20190711
  Serious: Yes (Other)
  Sender: FDA-Public Use
  Company Number: GB-EMD SERONO-9082890

PATIENT
  Age: 44 Year
  Sex: Female
  Weight: 106 kg

DRUGS (1)
  1. MAVENCLAD [Suspect]
     Active Substance: CLADRIBINE
     Indication: RELAPSING-REMITTING MULTIPLE SCLEROSIS
     Dosage: IN FIRST WEEK THERAPY, THE PATIENT WAS PRESCRIBED WITH TWO TABLETS (20 MG) ON DAYS 1 TO 5
     Route: 048
     Dates: start: 20190401, end: 20190401

REACTIONS (1)
  - Anaphylactic reaction [Recovered/Resolved]

NARRATIVE: CASE EVENT DATE: 20190401
